FAERS Safety Report 9651046 (Version 2)
Quarter: 2013Q4

REPORT INFORMATION
  Report Type: Spontaneous
  Country: JP (occurrence: JP)
  Receive Date: 20131029
  Receipt Date: 20131029
  Transmission Date: 20140711
  Serious: Yes (Other)
  Sender: FDA-Public Use
  Company Number: JP-PFIZER INC-2013297855

PATIENT
  Sex: 0

DRUGS (1)
  1. LYRICA [Suspect]
     Route: 048

REACTIONS (3)
  - Fracture [Unknown]
  - Fall [Recovered/Resolved]
  - Dizziness [Recovered/Resolved]
